FAERS Safety Report 25997412 (Version 2)
Quarter: 2025Q4

REPORT INFORMATION
  Report Type: Spontaneous
  Country: JP (occurrence: JP)
  Receive Date: 20251104
  Receipt Date: 20251124
  Transmission Date: 20260118
  Serious: Yes (Hospitalization, Other)
  Sender: MERCK SHARP & DOHME LLC
  Company Number: JP-009507513-2344376

PATIENT
  Age: 39 Year
  Sex: Female

DRUGS (3)
  1. KEYTRUDA [Suspect]
     Active Substance: PEMBROLIZUMAB
     Indication: Cervix carcinoma
     Route: 041
     Dates: start: 202510, end: 202510
  2. PACLITAXEL [Suspect]
     Active Substance: PACLITAXEL
     Indication: Cervix carcinoma
     Route: 041
     Dates: start: 202510, end: 202510
  3. CARBOPLATIN [Suspect]
     Active Substance: CARBOPLATIN
     Indication: Cervix carcinoma
     Route: 041
     Dates: start: 202510, end: 202510

REACTIONS (6)
  - Platelet count decreased [Recovered/Resolved]
  - Interstitial lung disease [Unknown]
  - Blood fibrinogen decreased [Not Recovered/Not Resolved]
  - Adrenal insufficiency [Not Recovered/Not Resolved]
  - Blood pressure decreased [Unknown]
  - Oedema [Unknown]

NARRATIVE: CASE EVENT DATE: 20250101
